FAERS Safety Report 5553754-5 (Version None)
Quarter: 2007Q4

REPORT INFORMATION
  Report Type: 
  Country: None (occurrence: None)
  Receive Date: 20071213
  Receipt Date: 20071206
  Transmission Date: 20080405
  Serious: Yes (Other)
  Sender: FDA-Public Use
  Company Number: JP-SP-2007-04038

PATIENT
  Age: 65 Year
  Sex: Male

DRUGS (2)
  1. IMMUCYST [Suspect]
     Indication: CARCINOMA IN SITU OF BLADDER
     Route: 043
     Dates: start: 20070612, end: 20070717
  2. IMMUCYST [Suspect]
     Route: 043
     Dates: start: 20070612, end: 20070717

REACTIONS (2)
  - PYREXIA [None]
  - RED BLOOD CELLS URINE POSITIVE [None]
